FAERS Safety Report 22277211 (Version 5)
Quarter: 2024Q1

REPORT INFORMATION
  Report Type: Report from Study
  Country: US (occurrence: US)
  Receive Date: 20230503
  Receipt Date: 20240126
  Transmission Date: 20240410
  Serious: Yes (Hospitalization, Other)
  Sender: FDA-Public Use
  Company Number: US-ABBVIE-4748518

PATIENT
  Age: 71 Year
  Sex: Female
  Weight: 78 kg

DRUGS (2)
  1. SKYRIZI [Suspect]
     Active Substance: RISANKIZUMAB-RZAA
     Indication: Psoriasis
     Route: 058
     Dates: start: 20221208
  2. SKYRIZI [Suspect]
     Active Substance: RISANKIZUMAB-RZAA
     Indication: Psoriatic arthropathy

REACTIONS (7)
  - Nephrolithiasis [Recovering/Resolving]
  - Loss of consciousness [Unknown]
  - Muscle rupture [Unknown]
  - Fall [Unknown]
  - Urinary tract infection [Unknown]
  - Lung disorder [Not Recovered/Not Resolved]
  - Bone contusion [Unknown]

NARRATIVE: CASE EVENT DATE: 20230414
